FAERS Safety Report 20719477 (Version 1)
Quarter: 2022Q2

REPORT INFORMATION
  Report Type: Spontaneous
  Country: FR (occurrence: FR)
  Receive Date: 20220418
  Receipt Date: 20220418
  Transmission Date: 20220721
  Serious: Yes (Other)
  Sender: FDA-Public Use
  Company Number: None

PATIENT
  Age: 43 Year
  Sex: Male

DRUGS (6)
  1. ALPRAZOLAM [Suspect]
     Active Substance: ALPRAZOLAM
     Indication: Alcohol detoxification
     Dosage: 200 MG, QD
     Route: 048
     Dates: end: 20220327
  2. OXAZEPAM [Suspect]
     Active Substance: OXAZEPAM
     Indication: Alcohol detoxification
     Dosage: 25 MG, QD (SI BESOIN)
     Route: 048
     Dates: end: 20220327
  3. ACUPAN [Suspect]
     Active Substance: NEFOPAM HYDROCHLORIDE
     Indication: Pain
     Dosage: 100 MG, Q24H
     Route: 042
     Dates: end: 20220328
  4. MORPHINE [Suspect]
     Active Substance: MORPHINE
     Indication: Pain
     Dosage: UNK
     Route: 042
     Dates: start: 20220322
  5. PIPERACILLIN SODIUM\TAZOBACTAM SODIUM [Suspect]
     Active Substance: PIPERACILLIN SODIUM\TAZOBACTAM SODIUM
     Indication: Fournier^s gangrene
     Dosage: 16 G, QD
     Route: 042
     Dates: start: 20220322, end: 20220327
  6. PIPERACILLIN SODIUM\TAZOBACTAM SODIUM [Suspect]
     Active Substance: PIPERACILLIN SODIUM\TAZOBACTAM SODIUM
     Dosage: 24 G, QD
     Route: 042
     Dates: start: 20220327, end: 20220328

REACTIONS (2)
  - Hallucination [Not Recovered/Not Resolved]
  - Psychomotor hyperactivity [Not Recovered/Not Resolved]

NARRATIVE: CASE EVENT DATE: 20220327
